FAERS Safety Report 9031252 (Version 3)
Quarter: 2013Q1

REPORT INFORMATION
  Report Type: Spontaneous
  Country: US (occurrence: US)
  Receive Date: 20130123
  Receipt Date: 20130227
  Transmission Date: 20140127
  Serious: Yes (Hospitalization)
  Sender: FDA-Public Use
  Company Number: US-GILEAD-2013-0068343

PATIENT
  Age: 70 Year
  Sex: Female

DRUGS (1)
  1. LETAIRIS [Suspect]
     Indication: PULMONARY ARTERIAL HYPERTENSION
     Dosage: 5 MG, QD
     Route: 048
     Dates: start: 20120125

REACTIONS (8)
  - Gout [Recovered/Resolved]
  - Haemorrhage [Unknown]
  - Gastrointestinal haemorrhage [Unknown]
  - Cardiac failure acute [Unknown]
  - Acute myocardial infarction [Unknown]
  - Telangiectasia [Unknown]
  - Anaemia [Not Recovered/Not Resolved]
  - Local swelling [Recovered/Resolved]
